FAERS Safety Report 15553625 (Version 1)
Quarter: 2018Q4

REPORT INFORMATION
  Report Type: Spontaneous
  Country: ES (occurrence: ES)
  Receive Date: 20181026
  Receipt Date: 20181026
  Transmission Date: 20190205
  Serious: Yes (Life-Threatening, Hospitalization)
  Sender: FDA-Public Use
  Company Number: ES-SUN PHARMACEUTICAL INDUSTRIES LTD-2018RR-189180

PATIENT
  Age: 77 Year
  Sex: Male

DRUGS (4)
  1. ORFIDAL 1 MG COMPRIMIDOS, 25 COMPRIMIDOS [Interacting]
     Active Substance: LORAZEPAM
     Indication: PRODUCT USED FOR UNKNOWN INDICATION
     Dosage: ()
     Route: 048
     Dates: start: 201808, end: 20180911
  2. CITALOPRAM [Suspect]
     Active Substance: CITALOPRAM HYDROBROMIDE
     Indication: BIPOLAR DISORDER
     Dosage: ()
     Route: 048
     Dates: start: 201808, end: 20180911
  3. QUETIAPINA (1136A) [Interacting]
     Active Substance: QUETIAPINE
     Indication: BIPOLAR DISORDER
     Dosage: ()
     Route: 048
     Dates: start: 201808, end: 20180911
  4. STILNOX 10 MG COMPRIMIDOS RECUBIERTOS CON PELICULA , 30 COMPRIMIDOS [Interacting]
     Active Substance: ZOLPIDEM TARTRATE
     Indication: BIPOLAR DISORDER
     Dosage: ()
     Route: 048
     Dates: start: 201808, end: 20180911

REACTIONS (2)
  - Myoclonic epilepsy [Recovered/Resolved]
  - Inappropriate antidiuretic hormone secretion [Recovered/Resolved]

NARRATIVE: CASE EVENT DATE: 20180911
